FAERS Safety Report 7155943-5 (Version None)
Quarter: 2010Q4

REPORT INFORMATION
  Report Type: 
  Country: None (occurrence: None)
  Receive Date: 20101214
  Receipt Date: 20101130
  Transmission Date: 20110411
  Serious: Yes (Death, Life-Threatening, Hospitalization, Other)
  Sender: FDA-Public Use
  Company Number: PHHY2010JP54229

PATIENT
  Sex: Male
  Weight: 45 kg

DRUGS (18)
  1. ICL670A ICL+DISTAB [Suspect]
     Indication: IRON OVERLOAD
     Dosage: 500 MG, DAILY
     Route: 048
     Dates: start: 20091001, end: 20091012
  2. ICL670A ICL+DISTAB [Suspect]
     Indication: LYMPHOMA
  3. FENTANYL-100 [Suspect]
     Dosage: UNK
     Dates: start: 20090926, end: 20091002
  4. CRAVIT [Concomitant]
     Dosage: UNK
     Route: 048
     Dates: start: 20090926, end: 20091007
  5. CONSTAN [Concomitant]
     Indication: PROPHYLAXIS
     Dosage: UNK
     Route: 048
     Dates: start: 20091009, end: 20091014
  6. CIPROFLOXACIN HCL [Concomitant]
     Dosage: UNK
     Route: 048
     Dates: start: 20091008, end: 20091010
  7. NAUZELIN [Concomitant]
     Indication: PROPHYLAXIS
     Dosage: UNK
     Route: 048
     Dates: start: 20091007, end: 20091014
  8. VFEND [Concomitant]
     Dosage: UNK
     Route: 048
     Dates: start: 20090925, end: 20091014
  9. FOLIAMIN [Concomitant]
     Dosage: UNK
     Route: 048
     Dates: start: 20091002, end: 20091009
  10. MIYA-BM [Concomitant]
     Dosage: UNK
     Route: 048
     Dates: start: 20090925, end: 20091009
  11. LOPEMIN [Concomitant]
     Dosage: UNK
     Route: 048
     Dates: start: 20091006, end: 20091009
  12. HYALEIN [Concomitant]
     Dosage: UNK
     Route: 047
     Dates: start: 20091001, end: 20091014
  13. GRAN [Concomitant]
     Dosage: UNK
     Dates: start: 20090925, end: 20091014
  14. PAZUFLOXACIN [Concomitant]
     Indication: DISSEMINATED INTRAVASCULAR COAGULATION
     Dosage: UNK
     Route: 041
     Dates: start: 20091009, end: 20091013
  15. RED CELLS MAP [Concomitant]
     Dosage: 2 UNITS EVERY WEEK
     Dates: start: 20090929, end: 20091020
  16. RED CELLS MAP [Concomitant]
     Dosage: 2 TO 6 UNITS EVERY 0.5 WEEKS
     Dates: start: 20091021, end: 20091120
  17. RED CELLS MAP [Concomitant]
     Dosage: 2 UNITS EVERY WEEK
     Dates: start: 20091121, end: 20091130
  18. RED CELLS MAP [Concomitant]
     Dosage: 2 TO 4 UNITS EVERY 0.5 WEEKS
     Dates: start: 20091201

REACTIONS (14)
  - ALANINE AMINOTRANSFERASE INCREASED [None]
  - ASPARTATE AMINOTRANSFERASE INCREASED [None]
  - BLOOD BILIRUBIN INCREASED [None]
  - BLOOD LACTATE DEHYDROGENASE INCREASED [None]
  - DISSEMINATED INTRAVASCULAR COAGULATION [None]
  - GASTRITIS HAEMORRHAGIC [None]
  - GASTROINTESTINAL HAEMORRHAGE [None]
  - MALIGNANT NEOPLASM PROGRESSION [None]
  - NAUSEA [None]
  - PLATELET COUNT DECREASED [None]
  - PNEUMONIA [None]
  - PROTEIN URINE PRESENT [None]
  - SEPSIS [None]
  - TRANSFUSION [None]
